FAERS Safety Report 17140845 (Version 1)
Quarter: 2019Q4

REPORT INFORMATION
  Report Type: Spontaneous
  Country: CA (occurrence: CA)
  Receive Date: 20191211
  Receipt Date: 20191211
  Transmission Date: 20200122
  Serious: Yes (Hospitalization, Other)
  Sender: FDA-Public Use
  Company Number: CA-APOTEX-2019AP026059

PATIENT
  Sex: Female

DRUGS (1)
  1. FENTANYL. [Suspect]
     Active Substance: FENTANYL
     Indication: PRODUCT USED FOR UNKNOWN INDICATION
     Dosage: 37 ?G, (37 ?G/H)
     Route: 065

REACTIONS (7)
  - Unresponsive to stimuli [Unknown]
  - Amnestic disorder [Unknown]
  - Brain injury [Unknown]
  - Respiratory depression [Unknown]
  - Toxicity to various agents [Unknown]
  - Overdose [Unknown]
  - Depressed level of consciousness [Unknown]
